FAERS Safety Report 7367381-0 (Version None)
Quarter: 2011Q1

REPORT INFORMATION
  Report Type: 
  Country: None (occurrence: None)
  Receive Date: 20110322
  Receipt Date: 20110317
  Transmission Date: 20110831
  Serious: Yes (Other)
  Sender: FDA-Public Use
  Company Number: JP-BRISTOL-MYERS SQUIBB COMPANY-15532146

PATIENT
  Age: 58 Year
  Sex: Male

DRUGS (9)
  1. ADONA [Concomitant]
  2. ULCERLMIN [Concomitant]
  3. TRANSAMIN [Concomitant]
  4. GASTER [Concomitant]
  5. STRONGER NEO-MINOPHAGEN C [Concomitant]
  6. PANTOSIN [Concomitant]
  7. BARACLUDE [Suspect]
     Indication: HEPATITIS B
     Dosage: AT BED TIME.
     Route: 048
  8. OXYNORM [Concomitant]
  9. CALONAL [Concomitant]

REACTIONS (3)
  - RENAL IMPAIRMENT [None]
  - HAEMATURIA [None]
  - PYREXIA [None]
